FAERS Safety Report 23787590 (Version 1)
Quarter: 2024Q2

REPORT INFORMATION
  Report Type: Spontaneous
  Country: GB (occurrence: GB)
  Receive Date: 20240426
  Receipt Date: 20240426
  Transmission Date: 20240715
  Serious: Yes (Hospitalization, Other)
  Sender: FDA-Public Use
  Company Number: None

PATIENT
  Age: 59 Year
  Sex: Male
  Weight: 84 kg

DRUGS (2)
  1. LEVETIRACETAM [Suspect]
     Active Substance: LEVETIRACETAM
     Dosage: 1000 MILLIGRAM, BID
     Route: 042
  2. LEVETIRACETAM [Suspect]
     Active Substance: LEVETIRACETAM
     Indication: Epilepsy
     Dosage: 4500 MILLIGRAM LOADING DOSE
     Route: 042
     Dates: start: 20240403, end: 20240407

REACTIONS (4)
  - Rhabdomyolysis [Not Recovered/Not Resolved]
  - Acute kidney injury [Unknown]
  - Blood creatine phosphokinase increased [Unknown]
  - Urine output decreased [Unknown]

NARRATIVE: CASE EVENT DATE: 20240404
